FAERS Safety Report 9103810 (Version 1)
Quarter: 2013Q1

REPORT INFORMATION
  Report Type: Report from Study
  Country: NL (occurrence: NL)
  Receive Date: 20130219
  Receipt Date: 20130219
  Transmission Date: 20140127
  Serious: Yes (Life-Threatening, Hospitalization)
  Sender: FDA-Public Use
  Company Number: NL-JNJFOC-20130209450

PATIENT
  Age: 61 Year
  Sex: Female
  Weight: 72.2 kg

DRUGS (3)
  1. INFLIXIMAB, RECOMBINANT [Suspect]
     Indication: PSORIASIS
     Route: 042
     Dates: start: 200404, end: 200704
  2. PREMEDICATION [Concomitant]
  3. ACITRETIN [Concomitant]

REACTIONS (1)
  - Myocardial infarction [Recovered/Resolved with Sequelae]
